FAERS Safety Report 21633670 (Version 3)
Quarter: 2022Q4

REPORT INFORMATION
  Report Type: Spontaneous
  Country: US (occurrence: US)
  Receive Date: 20221123
  Receipt Date: 20221205
  Transmission Date: 20230113
  Serious: No
  Sender: FDA-Public Use
  Company Number: US-PFIZER INC-202201313482

PATIENT
  Age: 60 Year
  Sex: Male
  Weight: 88.435 kg

DRUGS (4)
  1. PAXLOVID [Suspect]
     Active Substance: NIRMATRELVIR\RITONAVIR
     Indication: COVID-19 treatment
     Dosage: [PF-07321332 300 MG]/[RITONAVIR 100 MG]; 2X/DAY
     Dates: start: 20221106, end: 20221110
  2. DESLORATADINE [Concomitant]
     Active Substance: DESLORATADINE
     Indication: Multiple allergies
     Dosage: UNK
     Route: 048
     Dates: start: 2015
  3. FLUTICASONE PROPIONATE [Concomitant]
     Active Substance: FLUTICASONE PROPIONATE
     Indication: Multiple allergies
     Dosage: UNK
     Route: 045
     Dates: start: 2021
  4. FISH OIL [Concomitant]
     Active Substance: FISH OIL
     Indication: Routine health maintenance
     Dosage: UNK
     Route: 048
     Dates: start: 2015

REACTIONS (2)
  - COVID-19 [Recovered/Resolved]
  - Disease recurrence [Recovered/Resolved]

NARRATIVE: CASE EVENT DATE: 20221108
